FAERS Safety Report 25503840 (Version 1)
Quarter: 2025Q3

REPORT INFORMATION
  Report Type: Spontaneous
  Country: EU (occurrence: EU)
  Receive Date: 20250702
  Receipt Date: 20250702
  Transmission Date: 20251020
  Serious: Yes (Other)
  Sender: SANDOZ
  Company Number: EU-PFIZER INC-PV202500072330

PATIENT
  Age: 72 Year
  Sex: Female

DRUGS (4)
  1. DENOSUMAB [Suspect]
     Active Substance: DENOSUMAB
     Indication: Invasive breast carcinoma
     Route: 065
  2. IBRANCE [Suspect]
     Active Substance: PALBOCICLIB
     Dosage: 100 MG, DAILY, 21 DAYS WITH 7 DAYS REST
     Route: 065
     Dates: start: 202404
  3. IBRANCE [Suspect]
     Active Substance: PALBOCICLIB
     Indication: Invasive breast carcinoma
     Dosage: 125 MG, DAILY, 21 DAYS WITH 7 DAYS REST
     Route: 065
     Dates: start: 202312
  4. LETROZOLE [Suspect]
     Active Substance: LETROZOLE
     Indication: Invasive breast carcinoma
     Dosage: 2.5 MG, QD
     Route: 065

REACTIONS (2)
  - Neutropenia [Recovering/Resolving]
  - Leukopenia [Not Recovered/Not Resolved]

NARRATIVE: CASE EVENT DATE: 20240401
